FAERS Safety Report 8062110-X (Version None)
Quarter: 2012Q1

REPORT INFORMATION
  Report Type: 
  Country: None (occurrence: None)
  Receive Date: 20120118
  Receipt Date: 20120109
  Transmission Date: 20120608
  Serious: Yes (Death)
  Sender: FDA-Public Use
  Company Number: JPI-P-005178

PATIENT
  Age: 70 Year
  Sex: Female

DRUGS (4)
  1. NARCOLEPSY MEDICATIONS [Concomitant]
  2. XYREM [Suspect]
     Indication: NARCOLEPSY
     Dosage: 4.5 GM (2.25 GM, 2 IN 1 D), ORAL 7.5 GM (3.75 GM, 2 IN 1 D), ORAL 15 GM (7.5 GM, 2 IN 1 D), ORAL 7.5
     Route: 048
     Dates: start: 20080717, end: 20080806
  3. XYREM [Suspect]
     Indication: NARCOLEPSY
     Dosage: 4.5 GM (2.25 GM, 2 IN 1 D), ORAL 7.5 GM (3.75 GM, 2 IN 1 D), ORAL 15 GM (7.5 GM, 2 IN 1 D), ORAL 7.5
     Route: 048
     Dates: start: 20080619, end: 20080716
  4. XYREM [Suspect]
     Indication: NARCOLEPSY
     Dosage: 4.5 GM (2.25 GM, 2 IN 1 D), ORAL 7.5 GM (3.75 GM, 2 IN 1 D), ORAL 15 GM (7.5 GM, 2 IN 1 D), ORAL 7.5
     Route: 048
     Dates: start: 20080807, end: 20080807

REACTIONS (2)
  - ARTERIOSCLEROSIS [None]
  - HYPERTENSIVE HEART DISEASE [None]
